FAERS Safety Report 7528866-7 (Version None)
Quarter: 2011Q2

REPORT INFORMATION
  Report Type: 
  Country: None (occurrence: None)
  Receive Date: 20110607
  Receipt Date: 20110110
  Transmission Date: 20111010
  Serious: No
  Sender: FDA-Public Use
  Company Number: US-ASTRAZENECA-2011SE03274

PATIENT
  Sex: Female

DRUGS (1)
  1. PRILOSEC OTC [Suspect]
     Route: 048
     Dates: end: 20110110

REACTIONS (4)
  - TONGUE DISORDER [None]
  - ILL-DEFINED DISORDER [None]
  - HYPOAESTHESIA ORAL [None]
  - WRONG TECHNIQUE IN DRUG USAGE PROCESS [None]
